FAERS Safety Report 23018045 (Version 1)
Quarter: 2023Q4

REPORT INFORMATION
  Report Type: Spontaneous
  Country: JP (occurrence: JP)
  Receive Date: 20231003
  Receipt Date: 20231003
  Transmission Date: 20240109
  Serious: Yes (Hospitalization)
  Sender: FDA-Public Use
  Company Number: JP-KYOWAKIRIN-2023KK015097

PATIENT

DRUGS (4)
  1. ISTRADEFYLLINE [Suspect]
     Active Substance: ISTRADEFYLLINE
     Indication: Parkinson^s disease
     Dosage: 1 DF, QD (AFTER BREAKFAST)
     Route: 048
  2. CARBIDOPA\ENTACAPONE\LEVODOPA [Suspect]
     Active Substance: CARBIDOPA\ENTACAPONE\LEVODOPA
     Indication: Parkinson^s disease
     Dosage: 1 DF, TID (AFTER BREAKFAST, LUNCH AND DINNER)
     Route: 048
  3. AMANTADINE HYDROCHLORIDE [Concomitant]
     Active Substance: AMANTADINE HYDROCHLORIDE
     Indication: Parkinson^s disease
     Dosage: 1 DF, BID (AFTER BREAKFAST AND DINNER)
     Route: 048
  4. MAGNESIUM OXIDE [Concomitant]
     Active Substance: MAGNESIUM OXIDE
     Indication: Parkinson^s disease
     Dosage: 2 DF, TID (AFTER BREAKFAST, LUNCH AND DINNER)
     Route: 048

REACTIONS (1)
  - Orthostatic hypotension [Unknown]
